FAERS Safety Report 5026962-X (Version None)
Quarter: 2006Q2

REPORT INFORMATION
  Report Type: 
  Country: None (occurrence: None)
  Receive Date: 20060609
  Receipt Date: 20060123
  Transmission Date: 20061013
  Serious: Yes (Hospitalization)
  Sender: FDA-Public Use
  Company Number: 2005091244

PATIENT
  Age: 31 Year
  Sex: Female

DRUGS (5)
  1. AZULFIDINE EN-TABS [Suspect]
     Indication: RHEUMATOID ARTHRITIS
     Dosage: 1000 MG (500 MG, 2 IN 1 D), ORAL
     Route: 048
     Dates: start: 20050602, end: 20050616
  2. LEVOFLOXACIN [Concomitant]
  3. PREDNISOLONE [Concomitant]
  4. LEBENIN (LACTOBACILLUS ACIDOPHILUS, LACTOBACILLUS BIFIDUS, LYOPHILIZED [Concomitant]
  5. FAMOTIDINE [Concomitant]

REACTIONS (3)
  - DIARRHOEA [None]
  - RASH GENERALISED [None]
  - VOMITING [None]
